FAERS Safety Report 7784401-X (Version None)
Quarter: 2011Q3

REPORT INFORMATION
  Report Type: 
  Country: None (occurrence: None)
  Receive Date: 20110928
  Receipt Date: 20110923
  Transmission Date: 20111222
  Serious: Yes (Other)
  Sender: FDA-Public Use
  Company Number: PHHY2011CH60898

PATIENT
  Age: 56 Year
  Sex: Female

DRUGS (6)
  1. ZOLEDRONOC ACID [Suspect]
     Indication: OSTEITIS DEFORMANS
     Dosage: 5 MG
     Route: 042
     Dates: start: 20110531, end: 20110531
  2. SOLMUCOL [Concomitant]
     Dosage: 600 ML
  3. ATACAND [Concomitant]
     Dosage: 16 MG DAILY DOSE
  4. SERETIDE [Concomitant]
  5. ANTIINFLAMMATORY/ANTIRHEUMATIC NON-STEROIDS [Concomitant]
  6. SPIRIVA [Concomitant]

REACTIONS (7)
  - MALAISE [None]
  - JOINT EFFUSION [None]
  - INFLUENZA LIKE ILLNESS [None]
  - OSTEOARTHRITIS [None]
  - MYALGIA [None]
  - ARTHRALGIA [None]
  - PYREXIA [None]
